FAERS Safety Report 9241353 (Version 1)
Quarter: 2013Q2

REPORT INFORMATION
  Report Type: Spontaneous
  Country: US (occurrence: US)
  Receive Date: 20130419
  Receipt Date: 20130419
  Transmission Date: 20140414
  Serious: No
  Sender: FDA-Public Use
  Company Number: US-BIOGENIDEC-2013BI034709

PATIENT
  Age: 44 Year
  Sex: Female

DRUGS (6)
  1. TYSABRI [Suspect]
     Indication: MULTIPLE SCLEROSIS
     Route: 042
     Dates: start: 20111025
  2. LYRICA [Concomitant]
     Indication: ARTHRALGIA
  3. LYRICA [Concomitant]
     Indication: FIBROMYALGIA
  4. ABILIFY [Concomitant]
     Indication: DEPRESSION
  5. CYMBALTA [Concomitant]
     Indication: DEPRESSION
  6. WELLBUTRIN [Concomitant]
     Indication: DEPRESSION

REACTIONS (6)
  - Memory impairment [Not Recovered/Not Resolved]
  - Migraine [Recovered/Resolved]
  - Asthenia [Not Recovered/Not Resolved]
  - Arthralgia [Not Recovered/Not Resolved]
  - Upper respiratory tract infection [Recovered/Resolved]
  - Pneumonia [Recovered/Resolved]
